FAERS Safety Report 6599223-5 (Version None)
Quarter: 2010Q1

REPORT INFORMATION
  Report Type: 
  Country: None (occurrence: None)
  Receive Date: 20100224
  Receipt Date: 20100215
  Transmission Date: 20100710
  Serious: Yes (Other)
  Sender: FDA-Public Use
  Company Number: PHHY2010IT08458

PATIENT
  Sex: Male

DRUGS (6)
  1. ZOMETA [Suspect]
     Indication: PROSTATE CANCER
     Dosage: 4 MG, QMO
     Route: 042
     Dates: start: 20081201
  2. CASODEX [Concomitant]
  3. LASIX [Concomitant]
  4. CAMALOX [Concomitant]
  5. PANTOPAN [Concomitant]
  6. LEXOTAN [Concomitant]

REACTIONS (1)
  - OSTEONECROSIS [None]
